FAERS Safety Report 4784809-0 (Version None)
Quarter: 2005Q3

REPORT INFORMATION
  Report Type: 
  Country: None (occurrence: None)
  Receive Date: 20050930
  Receipt Date: 20050907
  Transmission Date: 20060218
  Serious: Yes (Hospitalization)
  Sender: FDA-Public Use
  Company Number: PHBS2005JP13295

PATIENT
  Age: 85 Year
  Sex: 0

DRUGS (12)
  1. GLYBURIDE [Suspect]
     Dosage: 1.25 MG, QD
     Route: 048
     Dates: start: 20020726, end: 20050902
  2. AMLODIPINE BESYLATE [Concomitant]
     Dosage: 5 MG, BID
     Route: 048
     Dates: start: 20050114
  3. LONGES [Concomitant]
     Dosage: 10 MG, UNK
     Route: 048
     Dates: start: 20010601
  4. DIOVAN [Suspect]
     Indication: HYPERTENSION
     Dosage: 80 MG, QD
     Route: 048
     Dates: start: 20040109
  5. ASPIRIN [Concomitant]
     Dosage: 100 MG, UNK
     Route: 048
     Dates: start: 20010601
  6. CARDENALIN [Concomitant]
     Dosage: 1 MG, UNK
     Route: 048
     Dates: start: 20050408
  7. MECOBALAMIN [Concomitant]
     Dosage: 1000 UG, UNK
     Route: 048
     Dates: start: 20010601
  8. NATEGLINIDE [Concomitant]
     Dosage: 90 MG, BID
     Dates: start: 20050824, end: 20050909
  9. BASEN [Suspect]
     Dosage: 0.6 MG, QD
     Route: 048
     Dates: start: 20010601
  10. CALSLOT [Concomitant]
     Dosage: 20 MG, UNK
     Route: 048
     Dates: start: 20010601, end: 20050114
  11. KAMAG G [Concomitant]
     Dosage: 0.7 G, UNK
     Route: 048
  12. NATEGLINIDE [Concomitant]
     Dosage: 30 MG, UNK
     Dates: start: 20050909

REACTIONS (3)
  - BLOOD CREATININE ABNORMAL [None]
  - HYPOGLYCAEMIA [None]
  - LOSS OF CONSCIOUSNESS [None]
